FAERS Safety Report 7956429-8 (Version None)
Quarter: 2011Q4

REPORT INFORMATION
  Report Type: 
  Country: None (occurrence: None)
  Receive Date: 20111205
  Receipt Date: 20111125
  Transmission Date: 20120403
  Serious: Yes (Death, Hospitalization)
  Sender: FDA-Public Use
  Company Number: JP-BRISTOL-MYERS SQUIBB COMPANY-16194318

PATIENT
  Age: 57 Year
  Sex: Female

DRUGS (13)
  1. VILDAGLIPTIN [Suspect]
     Route: 048
     Dates: start: 20110826
  2. FORTEO [Concomitant]
     Route: 058
     Dates: start: 20110812
  3. AMLODIPINE [Concomitant]
  4. EVISTA [Concomitant]
  5. PREDNISOLONE [Concomitant]
     Route: 048
  6. ARAVA [Suspect]
     Route: 048
  7. RABEPRAZOLE SODIUM [Concomitant]
  8. FLUCONAZOLE [Concomitant]
  9. BARACLUDE [Concomitant]
  10. ORENCIA [Suspect]
     Indication: RHEUMATOID ARTHRITIS
     Dosage: 13TH DOSE ON 07-OCT-2011.
     Route: 042
     Dates: start: 20101126, end: 20111007
  11. LOXONIN [Concomitant]
  12. STEROIDS [Concomitant]
  13. ALENDRONATE SODIUM [Concomitant]

REACTIONS (2)
  - MULTI-ORGAN FAILURE [None]
  - PANCREATITIS ACUTE [None]
